FAERS Safety Report 7034075-0 (Version None)
Quarter: 2010Q4

REPORT INFORMATION
  Report Type: 
  Country: None (occurrence: None)
  Receive Date: 20101006
  Receipt Date: 20100816
  Transmission Date: 20110411
  Serious: Yes (Other)
  Sender: FDA-Public Use
  Company Number: TR-001259

PATIENT
  Weight: 10 kg

DRUGS (1)
  1. NAGLAZYME (NAGLAZYME (GALSULFASE)) [Suspect]
     Indication: MUCOPOLYSACCHARIDOSIS VI
     Dosage: 5 MG/KG, INTRAVENOUS
     Route: 042
     Dates: start: 20100101

REACTIONS (1)
  - VARICELLA [None]
